FAERS Safety Report 20302822 (Version 4)
Quarter: 2022Q2

REPORT INFORMATION
  Report Type: Report from Study
  Country: US (occurrence: None)
  Receive Date: 20220106
  Receipt Date: 20220520
  Transmission Date: 20220721
  Serious: No
  Sender: FDA-Public Use
  Company Number: US-Merck Healthcare KGaA-9274791

PATIENT
  Age: 64 Year
  Sex: Female

DRUGS (4)
  1. REBIF [Suspect]
     Active Substance: INTERFERON BETA-1A
     Indication: Multiple sclerosis
     Route: 058
     Dates: start: 20130531
  2. REBIF [Suspect]
     Active Substance: INTERFERON BETA-1A
     Route: 058
     Dates: start: 20210604
  3. REBIF [Suspect]
     Active Substance: INTERFERON BETA-1A
     Route: 058
  4. REBIF [Suspect]
     Active Substance: INTERFERON BETA-1A
     Dosage: PREFILLED SYRINGE?PREVIOUSLY: REBIJECT II
     Route: 058

REACTIONS (9)
  - Multiple sclerosis relapse [Unknown]
  - Multiple sclerosis [Unknown]
  - Neck pain [Unknown]
  - Stress [Unknown]
  - Emotional disorder [Unknown]
  - Back pain [Unknown]
  - Sneezing [Unknown]
  - Therapy interrupted [Unknown]
  - Inappropriate schedule of product administration [Recovered/Resolved]

NARRATIVE: CASE EVENT DATE: 20210101
